FAERS Safety Report 18038023 (Version 1)
Quarter: 2020Q3

REPORT INFORMATION
  Report Type: Spontaneous
  Country: US (occurrence: US)
  Receive Date: 20200717
  Receipt Date: 20200717
  Transmission Date: 20201103
  Serious: No
  Sender: FDA-Public Use
  Company Number: US-SUNOVION-2020SUN002017

PATIENT
  Age: 61 Year
  Sex: Female

DRUGS (1)
  1. LATUDA [Suspect]
     Active Substance: LURASIDONE HYDROCHLORIDE
     Dosage: 20 MG
     Route: 048

REACTIONS (14)
  - Post viral fatigue syndrome [Unknown]
  - Nervousness [Unknown]
  - Decreased activity [Unknown]
  - Chronic fatigue syndrome [Unknown]
  - Headache [Unknown]
  - Agitation [Unknown]
  - Attention deficit hyperactivity disorder [Unknown]
  - Pain [Unknown]
  - Insomnia [Unknown]
  - Lymphadenopathy [Unknown]
  - Inflammation [Unknown]
  - Oropharyngeal pain [Unknown]
  - Influenza like illness [Unknown]
  - Stress [Unknown]
